FAERS Safety Report 10210785 (Version 1)
Quarter: 2014Q2

REPORT INFORMATION
  Report Type: Spontaneous
  Country: US (occurrence: US)
  Receive Date: 20140602
  Receipt Date: 20140602
  Transmission Date: 20141212
  Serious: Yes (Other)
  Sender: FDA-Public Use
  Company Number: US-JNJFOC-20140518617

PATIENT
  Age: 5 Decade
  Sex: Male

DRUGS (3)
  1. OLYSIO [Suspect]
     Indication: HEPATITIS C
     Route: 065
     Dates: start: 2014
  2. PEG-INTERFERON [Concomitant]
     Indication: HEPATITIS C
     Route: 065
  3. RIBAVIRIN [Concomitant]
     Indication: HEPATITIS C
     Route: 065

REACTIONS (4)
  - Jaundice [Unknown]
  - Blood bilirubin increased [Unknown]
  - Photosensitivity reaction [Unknown]
  - Blood albumin decreased [Unknown]
